FAERS Safety Report 15753102 (Version 1)
Quarter: 2018Q4

REPORT INFORMATION
  Report Type: Spontaneous
  Country: US (occurrence: US)
  Receive Date: 20181221
  Receipt Date: 20181221
  Transmission Date: 20190205
  Serious: No
  Sender: FDA-Public Use
  Company Number: US-ASTRAZENECA-2018SF60846

PATIENT
  Age: 37 Year
  Sex: Male

DRUGS (2)
  1. CRESTOR [Suspect]
     Active Substance: ROSUVASTATIN CALCIUM
     Dosage: BRAND CRESTOR BUT MAY HAVE BEEN GENERIC. START DOSE WAS 10 MG HCP THEN REDUCED THE DOSE TO 5 MG.
     Route: 065
  2. CRESTOR [Suspect]
     Active Substance: ROSUVASTATIN CALCIUM
     Dosage: BRAND CRESTOR BUT MAY HAVE BEEN GENERIC. START DOSE WAS 10 MG HCP THEN REDUCED THE DOSE TO 5 MG.
     Route: 048

REACTIONS (1)
  - Acne [Recovering/Resolving]
